FAERS Safety Report 17796336 (Version 15)
Quarter: 2021Q3

REPORT INFORMATION
  Report Type: Spontaneous
  Country: CA (occurrence: CA)
  Receive Date: 20200517
  Receipt Date: 20210714
  Transmission Date: 20211014
  Serious: Yes (Hospitalization)
  Sender: FDA-Public Use
  Company Number: CA-CELLTRION INC.-2020CA022368

PATIENT

DRUGS (6)
  1. INFLECTRA [Suspect]
     Active Substance: INFLIXIMAB-DYYB
     Dosage: 5 MG/KG EVERY 2,6 THEN EVERY 8 WEEKS, WEEK 0 DOSE
     Route: 042
     Dates: start: 20200420
  2. INFLECTRA [Suspect]
     Active Substance: INFLIXIMAB-DYYB
     Dosage: 5 MG/KG,RE?INDUCTION AT Q 0 , 2, 6 WEEK, THEN EVERY 8 WEEKS
     Route: 042
     Dates: start: 20210131, end: 20210131
  3. EPIPEN [Concomitant]
     Active Substance: EPINEPHRINE
     Dosage: 1 DF
     Route: 065
  4. SOLU?CORTEF [Concomitant]
     Active Substance: HYDROCORTISONE SODIUM SUCCINATE
     Dosage: 1 DF
     Route: 048
     Dates: start: 20200415
  5. INFLECTRA [Suspect]
     Active Substance: INFLIXIMAB-DYYB
     Indication: CROHN^S DISEASE
     Dosage: 1 DF
     Route: 042
     Dates: start: 201907, end: 201908
  6. EPIPEN [Concomitant]
     Active Substance: EPINEPHRINE
     Dosage: 1 DF, AS NEEDED
     Route: 065

REACTIONS (11)
  - Skin mass [Not Recovered/Not Resolved]
  - Malaise [Unknown]
  - Abdominal pain [Unknown]
  - Feeling cold [Not Recovered/Not Resolved]
  - Skin discolouration [Not Recovered/Not Resolved]
  - Treatment noncompliance [Unknown]
  - Inflammatory bowel disease [Unknown]
  - Adrenal disorder [Unknown]
  - Pancreatitis [Unknown]
  - Condition aggravated [Unknown]
  - Pyrexia [Not Recovered/Not Resolved]

NARRATIVE: CASE EVENT DATE: 2020
